FAERS Safety Report 14529150 (Version 2)
Quarter: 2018Q1

REPORT INFORMATION
  Report Type: Spontaneous
  Country: AT (occurrence: AT)
  Receive Date: 20180214
  Receipt Date: 20180219
  Transmission Date: 20180509
  Serious: Yes (Other)
  Sender: FDA-Public Use
  Company Number: AT-SUN PHARMACEUTICAL INDUSTRIES LTD-2018RR-163140

PATIENT
  Age: 60 Year
  Sex: Male
  Weight: 100 kg

DRUGS (13)
  1. INDERAL [Concomitant]
     Active Substance: PROPRANOLOL HYDROCHLORIDE
     Indication: PRODUCT USED FOR UNKNOWN INDICATION
     Dosage: 10 MG, UNK
     Route: 065
     Dates: start: 20160112, end: 20160112
  2. PRAXITEN [Concomitant]
     Active Substance: OXAZEPAM
     Dosage: AS NECESSARY
     Route: 065
     Dates: start: 20160113, end: 20160113
  3. MEXALEN [Concomitant]
     Active Substance: ACETAMINOPHEN
     Dosage: AS NECESSARY
     Route: 065
     Dates: start: 20160117, end: 20160117
  4. ZOLDEM [Concomitant]
     Active Substance: ZOLPIDEM TARTRATE
     Dosage: AS NECESSARY
     Route: 065
     Dates: start: 20160117, end: 20160117
  5. SERTRALINE [Suspect]
     Active Substance: SERTRALINE HYDROCHLORIDE
     Indication: PRODUCT USED FOR UNKNOWN INDICATION
     Dosage: 100 MG, UNK
     Route: 065
     Dates: start: 20160112, end: 20160115
  6. SERTRALINE [Suspect]
     Active Substance: SERTRALINE HYDROCHLORIDE
     Dosage: 50 MG, UNK
     Route: 065
     Dates: end: 20160111
  7. MEXALEN [Concomitant]
     Active Substance: ACETAMINOPHEN
     Indication: TENSION HEADACHE
     Dosage: AS NECESSARY
     Route: 065
     Dates: start: 20160114, end: 20160115
  8. OLEOVIT D3 [Concomitant]
     Active Substance: CHOLECALCIFEROL
     Indication: PRODUCT USED FOR UNKNOWN INDICATION
     Dosage: 30 GTT, UNK
     Route: 065
     Dates: start: 20160111
  9. RAMIPRIL/HCT 5/25 MG [Concomitant]
     Indication: PRODUCT USED FOR UNKNOWN INDICATION
     Route: 065
  10. PRAXITEN [Concomitant]
     Active Substance: OXAZEPAM
     Indication: PRODUCT USED FOR UNKNOWN INDICATION
     Dosage: AS NECESSARY
     Route: 065
     Dates: start: 20160112, end: 20160112
  11. THROMBO ASS [Concomitant]
     Active Substance: ASPIRIN
     Indication: PRODUCT USED FOR UNKNOWN INDICATION
     Dosage: 100 MG, UNK
     Route: 065
  12. ZOLDEM [Concomitant]
     Active Substance: ZOLPIDEM TARTRATE
     Indication: PRODUCT USED FOR UNKNOWN INDICATION
     Dosage: AS NECESSARY
     Route: 065
     Dates: start: 20160114, end: 20160115
  13. PANTOPRAZOLE [Concomitant]
     Active Substance: PANTOPRAZOLE
     Indication: PRODUCT USED FOR UNKNOWN INDICATION
     Dosage: 40 MG, UNK
     Route: 065

REACTIONS (1)
  - Pain in jaw [Recovered/Resolved]

NARRATIVE: CASE EVENT DATE: 20160115
